FAERS Safety Report 12613936 (Version 6)
Quarter: 2018Q1

REPORT INFORMATION
  Report Type: Spontaneous
  Country: US (occurrence: US)
  Receive Date: 20160802
  Receipt Date: 20180307
  Transmission Date: 20180508
  Serious: No
  Sender: FDA-Public Use
  Company Number: US-PFIZER INC-2016356698

PATIENT
  Age: 54 Year
  Sex: Female
  Weight: 81.65 kg

DRUGS (8)
  1. EFFEXOR XR [Suspect]
     Active Substance: VENLAFAXINE HYDROCHLORIDE
     Dosage: 112.5 MG, ONCE A DAY (37.5 MG AND 75 MG ONCE A DAY)
     Route: 048
     Dates: start: 2016
  2. BUSPIRONE [Concomitant]
     Active Substance: BUSPIRONE HYDROCHLORIDE
     Indication: ANXIETY
     Dosage: 45 MG, 1X/DAY
     Route: 048
     Dates: start: 1998
  3. BENAZEPRIL [Concomitant]
     Active Substance: BENAZEPRIL HYDROCHLORIDE
     Dosage: 10 MG, 1X/DAY
     Route: 048
     Dates: start: 2012
  4. EFFEXOR XR [Suspect]
     Active Substance: VENLAFAXINE HYDROCHLORIDE
     Indication: ANXIETY
     Dosage: 112.5 MG, 1X/DAY (EFFEXOR 37.5MG + 75MG)
     Route: 048
     Dates: start: 2003
  5. EFFEXOR XR [Suspect]
     Active Substance: VENLAFAXINE HYDROCHLORIDE
     Indication: DEPRESSION
     Dosage: 150 MG, ONCE A DAY
     Route: 048
     Dates: start: 2005, end: 2015
  6. BENAZEPRIL [Concomitant]
     Active Substance: BENAZEPRIL HYDROCHLORIDE
     Indication: BLOOD PRESSURE ABNORMAL
     Dosage: UNK
     Route: 048
     Dates: start: 1995
  7. EFFEXOR XR [Suspect]
     Active Substance: VENLAFAXINE HYDROCHLORIDE
     Dosage: 112.5 MG, ONCE A DAY (37.5 MG AND 75 MG ONCE A DAY)
     Route: 048
     Dates: start: 2015
  8. EFFEXOR XR [Suspect]
     Active Substance: VENLAFAXINE HYDROCHLORIDE
     Dosage: 75 MG, ONCE A DAY
     Route: 048
     Dates: start: 201607, end: 2016

REACTIONS (10)
  - Myalgia [Recovered/Resolved]
  - Condition aggravated [Recovered/Resolved]
  - Feeling abnormal [Recovered/Resolved]
  - Bradyphrenia [Recovered/Resolved]
  - Headache [Recovered/Resolved]
  - Frustration tolerance decreased [Recovered/Resolved]
  - Sinusitis [Recovered/Resolved]
  - Disease recurrence [Recovered/Resolved]
  - Depression [Recovered/Resolved]
  - Drug intolerance [Recovered/Resolved]

NARRATIVE: CASE EVENT DATE: 201504
